FAERS Safety Report 25321502 (Version 2)
Quarter: 2025Q2

REPORT INFORMATION
  Report Type: Report from Study
  Country: US (occurrence: US)
  Receive Date: 20250516
  Receipt Date: 20250523
  Transmission Date: 20250717
  Serious: Yes (Hospitalization, Other)
  Sender: ABBVIE
  Company Number: US-ABBVIE-6282614

PATIENT
  Age: 81 Year
  Sex: Male
  Weight: 79.83 kg

DRUGS (9)
  1. SKYRIZI [Suspect]
     Active Substance: RISANKIZUMAB-RZAA
     Indication: Arthritis
     Dosage: FORM STRENGTH: 150 MG
     Route: 058
     Dates: start: 2024, end: 202503
  2. SKYRIZI [Suspect]
     Active Substance: RISANKIZUMAB-RZAA
     Indication: Psoriasis
  3. OMEPRAZOLE [Concomitant]
     Active Substance: OMEPRAZOLE
     Indication: Gastrooesophageal reflux disease
  4. METOPROLOL [Concomitant]
     Active Substance: METOPROLOL
     Indication: Hypertension
  5. OMEGA 3 [Concomitant]
     Active Substance: CAPSAICIN
     Indication: Supplementation therapy
  6. FAMOTIDINE [Concomitant]
     Active Substance: FAMOTIDINE
     Indication: Blood cholesterol increased
  7. SIMVASTATIN [Concomitant]
     Active Substance: SIMVASTATIN
     Indication: Blood cholesterol increased
  8. TAMSULOSIN [Concomitant]
     Active Substance: TAMSULOSIN
     Indication: Prostatic disorder
  9. LEVOTHYROXINE [Concomitant]
     Active Substance: LEVOTHYROXINE
     Indication: Hypothyroidism

REACTIONS (8)
  - Cartilage atrophy [Recovered/Resolved]
  - Postoperative wound infection [Recovering/Resolving]
  - Incision site vesicles [Recovering/Resolving]
  - Coronary artery occlusion [Recovered/Resolved]
  - Arthralgia [Recovering/Resolving]
  - Oxygen saturation decreased [Recovered/Resolved]
  - Osteoarthritis [Recovered/Resolved]
  - Cardiovascular disorder [Recovered/Resolved]

NARRATIVE: CASE EVENT DATE: 20240101
